FAERS Safety Report 6508878-2 (Version None)
Quarter: 2009Q4

REPORT INFORMATION
  Report Type: 
  Country: None (occurrence: None)
  Receive Date: 20091221
  Receipt Date: 20090819
  Transmission Date: 20100525
  Serious: No
  Sender: FDA-Public Use
  Company Number: US-ASTRAZENECA-2009SE09083

PATIENT
  Age: 61 Year
  Sex: Female
  Weight: 104.3 kg

DRUGS (1)
  1. CRESTOR [Suspect]
     Route: 048
     Dates: start: 20090601

REACTIONS (3)
  - GASTROENTERITIS VIRAL [None]
  - GASTROINTESTINAL SOUNDS ABNORMAL [None]
  - MUSCULOSKELETAL STIFFNESS [None]
